FAERS Safety Report 4709023-6 (Version None)
Quarter: 2005Q3

REPORT INFORMATION
  Report Type: 
  Country: None (occurrence: None)
  Receive Date: 20050707
  Receipt Date: 20050622
  Transmission Date: 20060218
  Serious: Yes (Hospitalization)
  Sender: FDA-Public Use
  Company Number: GXBR2005US01075

PATIENT
  Age: 22 Year
  Sex: Female
  Weight: 91.6 kg

DRUGS (3)
  1. PENICILLIN G POTASSIUM [Suspect]
     Indication: PREMATURE RUPTURE OF MEMBRANES
     Dosage: 5 MILLION UNITS, INTRAVENOUS
     Route: 042
     Dates: start: 20050612, end: 20050612
  2. DEXTROSE IN LACTATED RINGER'S (CALCIUM CHLORIDE DIHYDRATE, GLUCOSE, PO [Concomitant]
  3. LACTATED RINGER'S INJECTION (CALCIUM CHLORIDE DIHYDRATE, POTASSIUM CHL [Concomitant]

REACTIONS (7)
  - ANAPHYLACTIC SHOCK [None]
  - CAESAREAN SECTION [None]
  - DRUG EXPOSURE DURING PREGNANCY [None]
  - ERYTHEMA [None]
  - FEELING ABNORMAL [None]
  - HYPOTENSION [None]
  - RASH GENERALISED [None]
